FAERS Safety Report 5409749-5 (Version None)
Quarter: 2007Q3

REPORT INFORMATION
  Report Type: 
  Country: None (occurrence: None)
  Receive Date: 20070809
  Receipt Date: 20070802
  Transmission Date: 20080115
  Serious: Yes (Death, Hospitalization)
  Sender: FDA-Public Use
  Company Number: B0482385A

PATIENT
  Age: 62 Year
  Sex: Female

DRUGS (3)
  1. AUGMENTIN '125' [Suspect]
     Route: 042
     Dates: start: 20070513, end: 20070521
  2. METHOTREXATE [Suspect]
     Route: 037
     Dates: start: 20070516, end: 20070516
  3. TEMODAL [Suspect]
     Route: 037
     Dates: start: 20070516, end: 20070516

REACTIONS (14)
  - BLISTER [None]
  - CIRCULATORY COLLAPSE [None]
  - CONJUNCTIVITIS [None]
  - DERMATOSIS [None]
  - DISEASE PROGRESSION [None]
  - ERYTHEMA [None]
  - MOUTH ULCERATION [None]
  - PYREXIA [None]
  - RESPIRATORY DISTRESS [None]
  - SEPSIS [None]
  - SKIN DEGENERATIVE DISORDER [None]
  - SKIN INFLAMMATION [None]
  - SKIN ULCER [None]
  - STEVENS-JOHNSON SYNDROME [None]
